FAERS Safety Report 10231129 (Version 1)
Quarter: 2014Q2

REPORT INFORMATION
  Report Type: Spontaneous
  Country: DE (occurrence: DE)
  Receive Date: 20140611
  Receipt Date: 20140611
  Transmission Date: 20141212
  Serious: Yes (Other)
  Sender: FDA-Public Use
  Company Number: DE-TEVA-486445GER

PATIENT
  Age: 40 Year
  Sex: Female

DRUGS (6)
  1. DOXORUBICIN [Suspect]
     Indication: B-CELL LYMPHOMA
     Dosage: 84 MILLIGRAM DAILY;
     Route: 041
     Dates: start: 20131101, end: 20131116
  2. VINCRISTIN [Suspect]
     Indication: B-CELL LYMPHOMA
     Dosage: 2 MILLIGRAM DAILY;
     Route: 041
     Dates: start: 20131101, end: 20131116
  3. RITUXIMAB [Suspect]
     Indication: B-CELL LYMPHOMA
     Route: 041
     Dates: start: 20131031, end: 20131115
  4. CYCLOPHOSPHAMID [Suspect]
     Indication: B-CELL LYMPHOMA
     Dosage: 1260 MILLIGRAM DAILY;
     Route: 041
     Dates: start: 20131101, end: 20131116
  5. PREDNISOLON [Concomitant]
     Indication: B-CELL LYMPHOMA
     Route: 048
     Dates: start: 20131101, end: 20131120
  6. NEULASTA [Concomitant]
     Indication: B-CELL LYMPHOMA
     Route: 058

REACTIONS (1)
  - Premature baby [Recovered/Resolved]
